FAERS Safety Report 7686054-8 (Version None)
Quarter: 2011Q3

REPORT INFORMATION
  Report Type: 
  Country: None (occurrence: None)
  Receive Date: 20110816
  Receipt Date: 20110804
  Transmission Date: 20111222
  Serious: Yes (Other)
  Sender: FDA-Public Use
  Company Number: PHFR2011GB04634

PATIENT
  Sex: Female

DRUGS (1)
  1. TEGRETOL [Suspect]
     Dosage: 1 DF, QD
     Route: 048

REACTIONS (5)
  - SKIN DISCOLOURATION [None]
  - FEELING ABNORMAL [None]
  - ARTHRALGIA [None]
  - CONTUSION [None]
  - JOINT SWELLING [None]
